FAERS Safety Report 18131549 (Version 8)
Quarter: 2022Q2

REPORT INFORMATION
  Report Type: Other
  Country: CA (occurrence: None)
  Receive Date: 20200810
  Receipt Date: 20220609
  Transmission Date: 20220721
  Serious: Yes (Other)
  Sender: FDA-Public Use
  Company Number: CA-ROCHE-2652346

PATIENT
  Age: 38 Year
  Sex: Female
  Weight: 82.2 kg

DRUGS (1)
  1. OCREVUS [Suspect]
     Active Substance: OCRELIZUMAB
     Indication: Relapsing-remitting multiple sclerosis
     Dosage: 300 MG AT DAY 0 AND 14, THEN 600 MG EVERY 6 MONTH, ?CONCENTRATE FOR INTRAVENOUS INFUSION
     Route: 042
     Dates: start: 20200722

REACTIONS (27)
  - Asthenia [Not Recovered/Not Resolved]
  - Hypoaesthesia [Recovered/Resolved]
  - Arthralgia [Recovered/Resolved]
  - Hypoaesthesia oral [Recovered/Resolved]
  - Back pain [Not Recovered/Not Resolved]
  - Fatigue [Not Recovered/Not Resolved]
  - Kidney infection [Not Recovered/Not Resolved]
  - Infusion related reaction [Not Recovered/Not Resolved]
  - Cough [Not Recovered/Not Resolved]
  - Pyrexia [Unknown]
  - Visual impairment [Recovering/Resolving]
  - Asthenia [Not Recovered/Not Resolved]
  - Ageusia [Not Recovered/Not Resolved]
  - Insomnia [Not Recovered/Not Resolved]
  - Gait inability [Not Recovered/Not Resolved]
  - Vomiting [Recovered/Resolved]
  - Painful respiration [Not Recovered/Not Resolved]
  - Rhinorrhoea [Not Recovered/Not Resolved]
  - Oropharyngeal pain [Not Recovered/Not Resolved]
  - Pain in extremity [Not Recovered/Not Resolved]
  - Panic attack [Not Recovered/Not Resolved]
  - Diplopia [Recovering/Resolving]
  - Memory impairment [Not Recovered/Not Resolved]
  - Musculoskeletal stiffness [Not Recovered/Not Resolved]
  - Immobile [Not Recovered/Not Resolved]
  - Pruritus [Not Recovered/Not Resolved]
  - Skin burning sensation [Not Recovered/Not Resolved]

NARRATIVE: CASE EVENT DATE: 20200722
